FAERS Safety Report 8628582 (Version 3)
Quarter: 2013Q4

REPORT INFORMATION
  Report Type: Spontaneous
  Country: US (occurrence: US)
  Receive Date: 20120621
  Receipt Date: 20131125
  Transmission Date: 20140711
  Serious: Yes (Hospitalization)
  Sender: FDA-Public Use
  Company Number: US-BAYER-2012-059098

PATIENT
  Age: 22 Year
  Sex: Female
  Weight: 58.96 kg

DRUGS (6)
  1. YASMIN [Suspect]
     Indication: CONTRACEPTION
     Dosage: UNK
     Dates: start: 200605, end: 200611
  2. YAZ [Suspect]
     Indication: CONTRACEPTION
  3. PROAIR HFA [Concomitant]
     Indication: ASTHMA
     Dosage: UNK
     Dates: start: 2010
  4. CELEXA [Concomitant]
     Indication: DEPRESSION
     Dosage: UNK
     Dates: start: 2010
  5. CENTRALLY ACTING SYMPATHOMIMETICS [Concomitant]
     Dosage: 30 MG, UNK
  6. TRAZODONE [Concomitant]
     Dosage: 50 MG, UNK

REACTIONS (6)
  - Gallbladder injury [None]
  - Injury [None]
  - Cholecystitis chronic [None]
  - Irritable bowel syndrome [None]
  - Abdominal pain upper [None]
  - Pain [None]
